FAERS Safety Report 19509851 (Version 3)
Quarter: 2021Q3

REPORT INFORMATION
  Report Type: Spontaneous
  Country: US (occurrence: US)
  Receive Date: 20210708
  Receipt Date: 20210907
  Transmission Date: 20211014
  Serious: Yes (Hospitalization)
  Sender: FDA-Public Use
  Company Number: US-RIGEL PHARMACEUTICALS, INC.-2021FOS000406

PATIENT
  Age: 56 Year
  Sex: Male

DRUGS (3)
  1. TAVALISSE [Suspect]
     Active Substance: FOSTAMATINIB
     Dosage: 100 MG, BID
     Route: 048
  2. IVIGLOB EX [Concomitant]
     Active Substance: HUMAN IMMUNOGLOBULIN G
     Indication: PRODUCT USED FOR UNKNOWN INDICATION
     Dosage: 6 GRAM, UNK
     Route: 042
     Dates: start: 202106
  3. TAVALISSE [Suspect]
     Active Substance: FOSTAMATINIB
     Indication: IMMUNE THROMBOCYTOPENIA
     Dosage: 100 MG, BID
     Route: 048
     Dates: start: 20190404

REACTIONS (6)
  - Therapeutic response unexpected [Unknown]
  - Platelet count decreased [Recovered/Resolved]
  - Lacrimation increased [Unknown]
  - Laboratory test abnormal [Unknown]
  - Hip arthroplasty [Unknown]
  - Platelet count increased [Unknown]

NARRATIVE: CASE EVENT DATE: 202106
